FAERS Safety Report 11501937 (Version 1)
Quarter: 2015Q3

REPORT INFORMATION
  Report Type: Spontaneous
  Country: US (occurrence: US)
  Receive Date: 20150914
  Receipt Date: 20150914
  Transmission Date: 20151125
  Serious: Yes (Hospitalization)
  Sender: FDA-Public Use
  Company Number: US-PFIZER INC-2015302220

PATIENT
  Sex: Female

DRUGS (1)
  1. TIKOSYN [Suspect]
     Active Substance: DOFETILIDE
     Dosage: UNK

REACTIONS (8)
  - Chest pain [Unknown]
  - Asthma [Unknown]
  - Drug ineffective [Unknown]
  - Memory impairment [Unknown]
  - Headache [Unknown]
  - Diarrhoea [Unknown]
  - Abnormal faeces [Unknown]
  - Dyspnoea [Unknown]
